FAERS Safety Report 20719562 (Version 1)
Quarter: 2022Q2

REPORT INFORMATION
  Report Type: Spontaneous
  Country: US (occurrence: US)
  Receive Date: 20220418
  Receipt Date: 20220418
  Transmission Date: 20220721
  Serious: No
  Sender: FDA-Public Use
  Company Number: US-PERRIGO-22US002687

PATIENT
  Age: 85 Year
  Sex: Female
  Weight: 62.585 kg

DRUGS (5)
  1. DEXTROMETHORPHAN HYDROBROMIDE\GUAIFENESIN [Suspect]
     Active Substance: DEXTROMETHORPHAN HYDROBROMIDE\GUAIFENESIN
     Indication: Productive cough
     Dosage: 1 TABLET, SINGLE
     Route: 048
     Dates: start: 20220124, end: 20220124
  2. DEXTROMETHORPHAN HYDROBROMIDE\GUAIFENESIN [Suspect]
     Active Substance: DEXTROMETHORPHAN HYDROBROMIDE\GUAIFENESIN
     Dosage: 1 TABLET, SINGLE
     Route: 048
     Dates: start: 20220213, end: 20220213
  3. LISINOPRIL [Concomitant]
     Active Substance: LISINOPRIL
     Indication: Hypertension
     Dosage: UNK
     Route: 065
  4. SYNTHROID [Concomitant]
     Active Substance: LEVOTHYROXINE SODIUM
     Indication: Hypothyroidism
     Dosage: UNK
     Route: 065
     Dates: start: 1962
  5. ASPIRIN [Concomitant]
     Active Substance: ASPIRIN
     Indication: Pain
     Dosage: UNK
     Route: 065

REACTIONS (3)
  - Feeling abnormal [Recovered/Resolved]
  - Dizziness [Recovered/Resolved]
  - Heart rate increased [Recovered/Resolved]

NARRATIVE: CASE EVENT DATE: 20220124
